FAERS Safety Report 8209056-1 (Version None)
Quarter: 2012Q1

REPORT INFORMATION
  Report Type: 
  Country: None (occurrence: None)
  Receive Date: 20120314
  Receipt Date: 20120307
  Transmission Date: 20120608
  Serious: Yes (Hospitalization)
  Sender: FDA-Public Use
  Company Number: US-ABBOTT-12P-163-0912824-00

PATIENT
  Age: 52 Year
  Sex: Female

DRUGS (1)
  1. HUMIRA [Suspect]
     Indication: PSORIASIS
     Dates: start: 20100501, end: 20110524

REACTIONS (3)
  - ALOPECIA [None]
  - SQUAMOUS CELL CARCINOMA OF SKIN [None]
  - ORGANISING PNEUMONIA [None]
